FAERS Safety Report 19187602 (Version 1)
Quarter: 2021Q2

REPORT INFORMATION
  Report Type: Spontaneous
  Country: PE (occurrence: PE)
  Receive Date: 20210428
  Receipt Date: 20210428
  Transmission Date: 20210717
  Serious: Yes (Death, Other)
  Sender: FDA-Public Use
  Company Number: PE-LUPIN PHARMACEUTICALS INC.-2021-06021

PATIENT
  Sex: Male
  Weight: .91 kg

DRUGS (2)
  1. PARENTERAL (CALCIUM CHLORIDE\POTASSIUM CHLORIDE\SODIUM ACETATE\SODIUM CHLORIDE) [Suspect]
     Active Substance: CALCIUM CHLORIDE\POTASSIUM CHLORIDE\SODIUM ACETATE\SODIUM CHLORIDE
     Indication: PARENTERAL NUTRITION
     Dosage: UNK
     Route: 064
     Dates: start: 2019
  2. FENOFIBRATE. [Suspect]
     Active Substance: FENOFIBRATE
     Indication: HYPERCHYLOMICRONAEMIA
     Dosage: 160 MILLIGRAM, QID (RECEIVED FOUR TIME DAILY)
     Route: 064
     Dates: start: 2019

REACTIONS (4)
  - Foetal exposure during pregnancy [Unknown]
  - Necrotising colitis [Fatal]
  - Premature baby [Unknown]
  - Low birth weight baby [Unknown]

NARRATIVE: CASE EVENT DATE: 2019
